FAERS Safety Report 8115905-8 (Version None)
Quarter: 2012Q1

REPORT INFORMATION
  Report Type: 
  Country: None (occurrence: None)
  Receive Date: 20120206
  Receipt Date: 20120127
  Transmission Date: 20120608
  Serious: No
  Sender: FDA-Public Use
  Company Number: BR-ROCHE-769032

PATIENT
  Sex: Female

DRUGS (2)
  1. ISOTRETINOIN [Suspect]
     Indication: ACNE
     Dosage: STRENGTH: 20 MG PER CAPSULE
     Route: 048
     Dates: start: 20100501, end: 20110301
  2. TRIQUILAR [Concomitant]
     Indication: CONTRACEPTION

REACTIONS (2)
  - NO ADVERSE EVENT [None]
  - PREGNANCY [None]
